FAERS Safety Report 9584132 (Version 1)
Quarter: 2013Q4

REPORT INFORMATION
  Report Type: Spontaneous
  Country: US (occurrence: US)
  Receive Date: 20131002
  Receipt Date: 20131002
  Transmission Date: 20140711
  Serious: No
  Sender: FDA-Public Use
  Company Number: US-AMGEN-USASP2013051674

PATIENT
  Age: 53 Year
  Sex: Male
  Weight: 102.4 kg

DRUGS (4)
  1. ENBREL [Suspect]
     Indication: RHEUMATOID ARTHRITIS
     Dosage: 50 MG, QWK
     Route: 058
     Dates: start: 2010, end: 20130715
  2. NAPROXEN [Concomitant]
     Dosage: 500 MG, UNK
  3. LOTREL [Concomitant]
     Dosage: UNK, 5-20 MG
  4. HYDROCHLOROTH [Concomitant]
     Dosage: 25 MG, UNK

REACTIONS (3)
  - Therapeutic response decreased [Unknown]
  - Local swelling [Unknown]
  - Pain [Unknown]
